FAERS Safety Report 13075731 (Version 1)
Quarter: 2016Q4

REPORT INFORMATION
  Report Type: Spontaneous
  Country: BR (occurrence: BR)
  Receive Date: 20161230
  Receipt Date: 20161230
  Transmission Date: 20170207
  Serious: Yes (Disabling, Other)
  Sender: FDA-Public Use
  Company Number: BR-JNJFOC-20161223072

PATIENT
  Age: 43 Year
  Sex: Female

DRUGS (2)
  1. HALDOL [Suspect]
     Active Substance: HALOPERIDOL
     Indication: AGITATION
     Route: 050
     Dates: start: 201612
  2. PROPANOLOL [Concomitant]
     Active Substance: PROPRANOLOL HYDROCHLORIDE
     Indication: BLOOD PRESSURE ABNORMAL
     Route: 065

REACTIONS (11)
  - Speech disorder [Unknown]
  - Eye disorder [Unknown]
  - Cerebrovascular accident [Unknown]
  - Oromandibular dystonia [Unknown]
  - Drooling [Unknown]
  - Slow response to stimuli [Unknown]
  - Dysphagia [Unknown]
  - Musculoskeletal stiffness [Unknown]
  - Sedation [Unknown]
  - Abnormal behaviour [Unknown]
  - Pharyngitis [Unknown]

NARRATIVE: CASE EVENT DATE: 201612
